FAERS Safety Report 6593790-3 (Version None)
Quarter: 2010Q1

REPORT INFORMATION
  Report Type: 
  Country: None (occurrence: None)
  Receive Date: 20100128
  Receipt Date: 20100121
  Transmission Date: 20100710
  Serious: Yes (Death, Hospitalization, Other)
  Sender: FDA-Public Use
  Company Number: SPV1-2009-02315

PATIENT
  Age: 17 Year
  Sex: Male

DRUGS (1)
  1. ELAPRASE [Suspect]
     Indication: MUCOPOLYSACCHARIDOSIS II
     Dosage: 3 DF, 1X/WEEK, IV DRIP
     Route: 041
     Dates: start: 20061026

REACTIONS (3)
  - AORTIC VALVE REPLACEMENT [None]
  - RESPIRATORY DISORDER [None]
  - RESPIRATORY FAILURE [None]
